FAERS Safety Report 18683957 (Version 1)
Quarter: 2020Q4

REPORT INFORMATION
  Report Type: Spontaneous
  Country: US (occurrence: US)
  Receive Date: 20201230
  Receipt Date: 20201230
  Transmission Date: 20210114
  Serious: Yes (Hospitalization)
  Sender: FDA-Public Use
  Company Number: US-SA-2020SA369439

PATIENT

DRUGS (2)
  1. AZATHIOPRINE. [Concomitant]
     Active Substance: AZATHIOPRINE
     Indication: SJOGREN^S SYNDROME
  2. TRIAMCINOLONE ACETONIDE. [Suspect]
     Active Substance: TRIAMCINOLONE ACETONIDE
     Indication: OESOPHAGEAL STENOSIS
     Dosage: FIRST INTRALESIONAL STEROID INJECTION (TRIAMCINOLONE 80 MG) COMBINED WITH SAVARY DILATION TO 12.8MM
     Route: 026

REACTIONS (4)
  - Infection [Unknown]
  - Swelling [Unknown]
  - Odynophagia [Unknown]
  - Abscess neck [Unknown]
